FAERS Safety Report 18740894 (Version 1)
Quarter: 2021Q1

REPORT INFORMATION
  Report Type: Spontaneous
  Country: US (occurrence: US)
  Receive Date: 20210114
  Receipt Date: 20210114
  Transmission Date: 20210419
  Serious: No
  Sender: FDA-Public Use
  Company Number: US-PFIZER INC-2021020005

PATIENT
  Age: 59 Year
  Sex: Female

DRUGS (2)
  1. DEMEROL [Suspect]
     Active Substance: MEPERIDINE HYDROCHLORIDE
     Indication: PAIN
     Dosage: UNK
  2. CORTISONE [Suspect]
     Active Substance: CORTISONE
     Indication: PAIN
     Dosage: UNK

REACTIONS (3)
  - Drug hypersensitivity [Unknown]
  - White blood cell count increased [Unknown]
  - Drug ineffective [Unknown]
